FAERS Safety Report 9773620 (Version 2)
Quarter: 2013Q4

REPORT INFORMATION
  Report Type: Spontaneous
  Country: US (occurrence: US)
  Receive Date: 20131219
  Receipt Date: 20131219
  Transmission Date: 20140711
  Serious: No
  Sender: FDA-Public Use
  Company Number: US-MYLANLABS-2013S1023271

PATIENT
  Age: 51 Year
  Sex: Female
  Weight: 52.16 kg

DRUGS (3)
  1. FLURAZEPAM HYDROCHLORIDE CAPSULES, USP [Suspect]
     Indication: FIBROMYALGIA
     Route: 048
     Dates: start: 201307
  2. FLURAZEPAM HYDROCHLORIDE CAPSULES, USP [Suspect]
     Indication: BALANCE DISORDER
     Route: 048
     Dates: start: 201307
  3. FLURAZEPAM HYDROCHLORIDE CAPSULES, USP [Suspect]
     Indication: OFF LABEL USE
     Route: 048
     Dates: start: 201307

REACTIONS (1)
  - Paraesthesia [Not Recovered/Not Resolved]
